FAERS Safety Report 24161007 (Version 1)
Quarter: 2024Q3

REPORT INFORMATION
  Report Type: Spontaneous
  Country: FR (occurrence: FR)
  Receive Date: 20240801
  Receipt Date: 20240801
  Transmission Date: 20241017
  Serious: Yes (Other)
  Sender: Haleon PLC
  Company Number: FR-HALEON-2189856

PATIENT
  Age: 43 Year
  Sex: Female

DRUGS (4)
  1. TERBINAFINE [Suspect]
     Active Substance: TERBINAFINE
     Indication: Rash
     Route: 003
     Dates: start: 20240403, end: 20240415
  2. FLECTOR [Concomitant]
     Active Substance: DICLOFENAC EPOLAMINE
     Indication: Product used for unknown indication
     Dates: start: 20240318, end: 20240402
  3. IBUPROFENE (IBUPROFEN) [Concomitant]
     Indication: Product used for unknown indication
  4. IZALGI (PAPAVER SOMNIFERUM, PARACETAMOL) [Concomitant]
     Indication: Product used for unknown indication
     Dates: start: 20240312, end: 20240408

REACTIONS (1)
  - Dermatitis exfoliative generalised [Not Recovered/Not Resolved]

NARRATIVE: CASE EVENT DATE: 20240420
